FAERS Safety Report 14684727 (Version 5)
Quarter: 2021Q3

REPORT INFORMATION
  Report Type: Report from Study
  Country: US (occurrence: US)
  Receive Date: 20180327
  Receipt Date: 20210708
  Transmission Date: 20211014
  Serious: Yes (Other)
  Sender: FDA-Public Use
  Company Number: US-JAZZ-2018-US-002406

PATIENT
  Sex: Female

DRUGS (43)
  1. NALTREXONE HCL [Concomitant]
     Active Substance: NALTREXONE HYDROCHLORIDE
  2. OXYBUTYNIN. [Concomitant]
     Active Substance: OXYBUTYNIN CHLORIDE
  3. AMOXICILLIN. [Concomitant]
     Active Substance: AMOXICILLIN
  4. SINGULAIR [Concomitant]
     Active Substance: MONTELUKAST SODIUM
  5. TOPAMAX [Concomitant]
     Active Substance: TOPIRAMATE
  6. BRIMONIDINE [Concomitant]
     Active Substance: BRIMONIDINE TARTRATE
  7. PHOSPHATIDYLSERINE [Concomitant]
     Active Substance: PHOSPHATIDYL SERINE
  8. ALBUTEROL SULFATE. [Concomitant]
     Active Substance: ALBUTEROL SULFATE
  9. SUMATRIPTAN SUCCINATE. [Concomitant]
     Active Substance: SUMATRIPTAN SUCCINATE
  10. WITHANIA SOMNIFERA [Concomitant]
     Active Substance: HERBALS
  11. SCHIZANDRA [Concomitant]
  12. SELENIUM [Concomitant]
     Active Substance: SELENIUM
  13. PHYTOMENADIONE [Concomitant]
     Active Substance: PHYTONADIONE
  14. XYREM [Suspect]
     Active Substance: SODIUM OXYBATE
     Indication: NARCOLEPSY
     Dosage: 2.25 G, BID
     Route: 048
     Dates: start: 201508, end: 201509
  15. XYREM [Suspect]
     Active Substance: SODIUM OXYBATE
     Dosage: 4.5 G, BID
     Route: 048
     Dates: start: 201510
  16. CALCIUM + MAGNESIUM + ZINK [Concomitant]
  17. DMAE [Concomitant]
  18. VITAMIN B COMPLEX [Concomitant]
     Active Substance: CYANOCOBALAMIN\DEXPANTHENOL\NIACINAMIDE\PYRIDOXINE HYDROCHLORIDE\RIBOFLAVIN 5^-PHOSPHATE SODIUM\THIAMINE HYDROCHLORIDE\VITAMIN B COMPLEX
  19. HGH [Concomitant]
  20. VITAMIN D3 [Concomitant]
     Active Substance: CHOLECALCIFEROL
  21. DICYCLOVERINE [Concomitant]
     Active Substance: DICYCLOMINE HYDROCHLORIDE
  22. GLUTAMINE [Concomitant]
     Active Substance: GLUTAMINE
  23. MELOXICAM. [Concomitant]
     Active Substance: MELOXICAM
  24. AGARICUS BLAZEI [Concomitant]
  25. VITAMIN B12 [Concomitant]
     Active Substance: CYANOCOBALAMIN
  26. ESCITALOPRAM [Concomitant]
     Active Substance: ESCITALOPRAM OXALATE
  27. MOVE FREE ULTRA [Concomitant]
  28. RHODIOLA ROSEA [Concomitant]
     Active Substance: HERBALS
  29. SALMO SALAR OIL [Concomitant]
     Active Substance: ATLANTIC SALMON OIL
  30. XYREM [Suspect]
     Active Substance: SODIUM OXYBATE
     Dosage: 3 G, BID
     Route: 048
     Dates: start: 201509, end: 201510
  31. MUCUNA PRURIENS [Concomitant]
     Active Substance: HERBALS
  32. PHOSPHATIDYL SERINE [Concomitant]
     Active Substance: PHOSPHATIDYL SERINE
  33. BUPROPION HCL [Concomitant]
     Active Substance: BUPROPION HYDROCHLORIDE
  34. D?RIBOSE [Concomitant]
     Active Substance: DIETARY SUPPLEMENT
  35. LATANOPROST. [Concomitant]
     Active Substance: LATANOPROST
  36. SYMBICORT [Concomitant]
     Active Substance: BUDESONIDE\FORMOTEROL FUMARATE DIHYDRATE
  37. MODAFINIL. [Concomitant]
     Active Substance: MODAFINIL
  38. GINKGO BILOBA [Concomitant]
     Active Substance: GINKGO
  39. OXYBUTYNIN CHLORIDE. [Concomitant]
     Active Substance: OXYBUTYNIN CHLORIDE
  40. MOLYBDENUM [Concomitant]
     Active Substance: MOLYBDENUM
  41. MORINGA OLEIFERA [Concomitant]
  42. N?ACETYL?L?CYSTEINE [Concomitant]
     Active Substance: ACETYLCYSTEINE
  43. RESTASIS [Concomitant]
     Active Substance: CYCLOSPORINE

REACTIONS (6)
  - Ocular hyperaemia [Unknown]
  - Chronic fatigue syndrome [Not Recovered/Not Resolved]
  - Arthritis [Not Recovered/Not Resolved]
  - Autoimmune disorder [Not Recovered/Not Resolved]
  - Irritable bowel syndrome [Unknown]
  - Psoriasis [Not Recovered/Not Resolved]
